FAERS Safety Report 4725974-0 (Version None)
Quarter: 2005Q3

REPORT INFORMATION
  Report Type: 
  Country: None (occurrence: None)
  Receive Date: 20050727
  Receipt Date: 20050713
  Transmission Date: 20060218
  Serious: Yes (Death)
  Sender: FDA-Public Use
  Company Number: JP-GLAXOSMITHKLINE-B0387787A

PATIENT
  Age: 87 Year
  Sex: Female
  Weight: 52 kg

DRUGS (10)
  1. PAXIL [Suspect]
     Indication: PANIC DISORDER
     Route: 048
     Dates: start: 20050420, end: 20050623
  2. ASPIRIN [Concomitant]
     Dosage: 100MG PER DAY
     Route: 048
  3. MAGNESIUM OXIDE [Concomitant]
     Dosage: 1.5G PER DAY
     Route: 048
  4. MINITRO [Concomitant]
     Dosage: 1UNIT PER DAY
     Route: 062
  5. DIART [Concomitant]
     Dosage: 30MG PER DAY
     Route: 048
  6. RENIVACE [Concomitant]
     Dosage: 5MG PER DAY
     Route: 048
  7. ALDACTONE [Concomitant]
     Dosage: 50MG PER DAY
     Route: 048
  8. SOLANAX [Concomitant]
     Dosage: 1.2MG PER DAY
     Route: 048
     Dates: start: 20050622, end: 20050623
  9. NAUZELIN [Concomitant]
     Route: 065
  10. COUGHNOL [Concomitant]
     Dosage: 3TAB PER DAY
     Route: 048

REACTIONS (4)
  - CARDIAC FAILURE CHRONIC [None]
  - HYPERKALAEMIA [None]
  - HYPONATRAEMIA [None]
  - INAPPROPRIATE ANTIDIURETIC HORMONE SECRETION [None]
